FAERS Safety Report 6462177-6 (Version None)
Quarter: 2009Q4

REPORT INFORMATION
  Report Type: 
  Country: None (occurrence: None)
  Receive Date: 20091130
  Receipt Date: 20091120
  Transmission Date: 20100525
  Serious: Yes (Hospitalization, Disabling, Other)
  Sender: FDA-Public Use
  Company Number: US-BAYER-200917066BCC

PATIENT
  Age: 23 Year
  Sex: Male
  Weight: 107 kg

DRUGS (1)
  1. ALKA-SELTZER PLUS COLD [Suspect]
     Indication: NASOPHARYNGITIS
     Route: 048
     Dates: start: 19960101, end: 20000101

REACTIONS (13)
  - BIPOLAR DISORDER [None]
  - CEREBROVASCULAR DISORDER [None]
  - HALLUCINATION [None]
  - HEADACHE [None]
  - HYPERTENSION [None]
  - HYPOAESTHESIA [None]
  - MEMORY IMPAIRMENT [None]
  - METABOLIC DISORDER [None]
  - MUSCULOSKELETAL STIFFNESS [None]
  - PAIN [None]
  - PAIN IN EXTREMITY [None]
  - SCHIZOPHRENIA [None]
  - SLEEP DISORDER [None]
